FAERS Safety Report 25939665 (Version 1)
Quarter: 2025Q4

REPORT INFORMATION
  Report Type: Spontaneous
  Country: BR (occurrence: BR)
  Receive Date: 20251020
  Receipt Date: 20251020
  Transmission Date: 20260118
  Serious: Yes (Other)
  Sender: SANOFI AVENTIS
  Company Number: BR-SA-2025SA308685

PATIENT
  Age: 60 Year
  Sex: Female

DRUGS (5)
  1. CABLIVI [Suspect]
     Active Substance: CAPLACIZUMAB-YHDP
     Indication: Thrombocytopenic purpura
     Dosage: UNK
     Route: 065
     Dates: start: 202510, end: 202510
  2. CABLIVI [Suspect]
     Active Substance: CAPLACIZUMAB-YHDP
     Indication: Thrombocytopenic purpura
     Dosage: UNK
     Route: 065
     Dates: start: 202510, end: 202510
  3. CABLIVI [Suspect]
     Active Substance: CAPLACIZUMAB-YHDP
     Indication: Thrombocytopenic purpura
     Dosage: UNK
     Route: 065
     Dates: start: 202510, end: 202510
  4. CABLIVI [Suspect]
     Active Substance: CAPLACIZUMAB-YHDP
     Indication: Thrombocytopenic purpura
     Dosage: UNK
     Route: 065
     Dates: start: 202510, end: 202510
  5. RITUXIMAB [Concomitant]
     Active Substance: RITUXIMAB
     Dosage: UNK

REACTIONS (3)
  - Thrombocytopenia [Unknown]
  - Drug ineffective [Unknown]
  - Infection [Unknown]

NARRATIVE: CASE EVENT DATE: 20251001
